FAERS Safety Report 4395390-2 (Version None)
Quarter: 2004Q3

REPORT INFORMATION
  Report Type: 
  Country: None (occurrence: None)
  Receive Date: 20040707
  Receipt Date: 20040622
  Transmission Date: 20050211
  Serious: Yes (Death, Life-Threatening, Hospitalization)
  Sender: FDA-Public Use
  Company Number: 205488

PATIENT
  Age: 65 Year
  Sex: Male
  Weight: 105 kg

DRUGS (17)
  1. MABTHERA (RITUXIMAB) CONC FOR SOLUTION FOR INFUSION [Suspect]
     Indication: VASCULITIS
     Dosage: 800 MG, 1/WEEK, INTRAVENOUS
     Route: 042
     Dates: start: 20040311, end: 20040318
  2. CYCLOPHOSPHAMIDE [Suspect]
     Indication: POLYARTERITIS NODOSA
     Dosage: SEE IMAGE
     Dates: start: 20030101
  3. CYCLOPHOSPHAMIDE [Suspect]
     Indication: POLYARTERITIS NODOSA
     Dosage: SEE IMAGE
     Dates: start: 20030701
  4. STAGID (METFORMIN) [Concomitant]
  5. TENORMIN [Concomitant]
  6. ZANEDIP (LERCANDIPINE) [Concomitant]
  7. MICARDIS [Concomitant]
  8. OGAST (LANSOPRAZOLE) [Concomitant]
  9. FOSAMAX [Concomitant]
  10. CACIT D3 (CHOLECALCIFEROL, CALCIUM CARBONATE) [Concomitant]
  11. MIXTARD (INSULIN (SUSPENSION), ISOPHANE, INSULIN) [Concomitant]
  12. KARDEGIC (ASPIRIN DI-LYSINE) [Concomitant]
  13. DIAMOX [Concomitant]
  14. POTASSIUM CHLORIDE [Concomitant]
  15. PREDNISONE TAB [Concomitant]
  16. ESBERIVEN (COUMARIN, HEPARIN SODIUM, MELILOT, RUTIN) [Concomitant]
  17. TAMSULOSIN (TAMSULOSIN HYDROCHLORIDE) [Concomitant]

REACTIONS (18)
  - ACUTE CORONARY SYNDROME [None]
  - ANAEMIA MACROCYTIC [None]
  - ASTHENIA [None]
  - ATRIAL FIBRILLATION [None]
  - BEDRIDDEN [None]
  - BRONCHOSPASM [None]
  - CATHETER REMOVAL [None]
  - CHEST PAIN [None]
  - HYPERTHERMIA [None]
  - INFLAMMATION [None]
  - LEUKOPENIA [None]
  - LYMPHOPENIA [None]
  - METABOLIC SYNDROME [None]
  - MULTI-ORGAN FAILURE [None]
  - OFF LABEL USE [None]
  - RENAL FAILURE [None]
  - SHOCK [None]
  - TACHYARRHYTHMIA [None]
